FAERS Safety Report 9261617 (Version 2)
Quarter: 2013Q2

REPORT INFORMATION
  Report Type: Spontaneous
  Country: US (occurrence: US)
  Receive Date: 20130429
  Receipt Date: 20130506
  Transmission Date: 20140414
  Serious: No
  Sender: FDA-Public Use
  Company Number: US-B.I. PHARMACEUTICALS,INC./RIDGEFIELD-2013-BI-10910BP

PATIENT
  Sex: Female

DRUGS (8)
  1. SPIRIVA [Suspect]
     Indication: CHRONIC OBSTRUCTIVE PULMONARY DISEASE
     Dosage: 18 MCG
     Route: 048
  2. TRIPLIX [Concomitant]
     Indication: BLOOD CHOLESTEROL INCREASED
     Dosage: 135 MG
     Route: 048
  3. PRAVASTATIN [Concomitant]
     Dosage: 20 MG
     Route: 048
  4. SYMBICORT [Concomitant]
     Indication: ASTHMA
  5. VENTOLIN [Concomitant]
  6. MAX AIR [Concomitant]
  7. ASPIRIN [Concomitant]
     Indication: MYOCARDIAL INFARCTION
     Dosage: 81 MG
     Route: 048
  8. PLAVIX [Concomitant]
     Dosage: 75 MG
     Route: 048

REACTIONS (6)
  - Dyspnoea [Unknown]
  - Product quality issue [Unknown]
  - Product quality issue [Unknown]
  - Product quality issue [Unknown]
  - Gastrooesophageal reflux disease [Unknown]
  - Chest pain [Unknown]
